FAERS Safety Report 4688757-6 (Version None)
Quarter: 2005Q2

REPORT INFORMATION
  Report Type: 
  Country: None (occurrence: None)
  Receive Date: 20050609
  Receipt Date: 20050609
  Transmission Date: 20051028
  Serious: Yes (Hospitalization)
  Sender: FDA-Public Use
  Company Number: None

PATIENT
  Age: 83 Year
  Sex: Female
  Weight: 18.1439 kg

DRUGS (2)
  1. PROZAC [Suspect]
     Indication: ANTIDEPRESSANT THERAPY
     Dates: start: 20050401
  2. LEXAPRO [Suspect]
     Indication: ANTIDEPRESSANT THERAPY
     Dates: start: 20050401

REACTIONS (1)
  - MENTAL STATUS CHANGES [None]
